FAERS Safety Report 21555629 (Version 1)
Quarter: 2022Q4

REPORT INFORMATION
  Report Type: Spontaneous
  Country: IT (occurrence: IT)
  Receive Date: 20221104
  Receipt Date: 20221104
  Transmission Date: 20230112
  Serious: Yes (Hospitalization)
  Sender: FDA-Public Use
  Company Number: None

PATIENT
  Age: 62 Year
  Sex: Male
  Weight: 56 kg

DRUGS (9)
  1. FLUOROURACIL [Suspect]
     Active Substance: FLUOROURACIL
     Indication: Colorectal adenocarcinoma
     Dosage: THE DRUG IS ADMINISTERED ACCORDING TO THE FOLFIRI SCHEME EVERY TWO WEEKS , DURATION : 14 DAYS
     Dates: start: 20220906, end: 20220920
  2. ENOXAPARIN SODIUM [Concomitant]
     Active Substance: ENOXAPARIN SODIUM
     Indication: Product used for unknown indication
  3. ERBITUX [Concomitant]
     Active Substance: CETUXIMAB
     Indication: Colorectal adenocarcinoma
     Dosage: THE STARTING DOSE IS 400 MG OF CETUXIMAB PER M  OF BODY SURFACE AREA. ALL SUBSEQUENT WEEKLY DOSES AR
     Dates: start: 20220906, end: 20220927
  4. LASIX [Concomitant]
     Active Substance: FUROSEMIDE
     Indication: Hypertension
     Dosage: 25 MILLIGRAM DAILY; 25 MG / DAY
  5. ACETAMINOPHEN [Concomitant]
     Active Substance: ACETAMINOPHEN
     Indication: Product used for unknown indication
     Dosage: 1000 MG AS NEEDED , PARACETAMOLO
  6. TAVOR [Concomitant]
     Indication: Product used for unknown indication
  7. LANSOPRAZOLE [Concomitant]
     Active Substance: LANSOPRAZOLE
     Indication: Product used for unknown indication
     Dosage: 30 MILLIGRAM DAILY; 30MG / DAY
  8. IRINOTECAN [Concomitant]
     Active Substance: IRINOTECAN
     Indication: Colorectal adenocarcinoma
     Dosage: THE DRUG IS ADMINISTERED ACCORDING TO THE FOLFIRI SCHEME EVERY TWO WEEKS , DURATION : 14 DAYS
     Dates: start: 20220906, end: 20220920
  9. MYCOSTATIN [Concomitant]
     Active Substance: NYSTATIN
     Indication: Product used for unknown indication
     Dosage: 4 ML DAILY; 4 ML / DAY

REACTIONS (1)
  - Acute coronary syndrome [Recovering/Resolving]

NARRATIVE: CASE EVENT DATE: 20221004
